FAERS Safety Report 5757694-8 (Version None)
Quarter: 2008Q2

REPORT INFORMATION
  Report Type: 
  Country: None (occurrence: None)
  Receive Date: 20080603
  Receipt Date: 20080522
  Transmission Date: 20081010
  Serious: Yes (Other)
  Sender: FDA-Public Use
  Company Number: US-PFIZER INC-2008045919

PATIENT
  Sex: Female
  Weight: 50.3 kg

DRUGS (7)
  1. CHANTIX [Suspect]
     Indication: SMOKING CESSATION THERAPY
  2. FENTANYL-100 [Suspect]
     Indication: NECK INJURY
  3. KLONOPIN [Concomitant]
  4. ZANAFLEX [Concomitant]
  5. VITAMIN TAB [Concomitant]
  6. LORTAB [Concomitant]
  7. LOMOTIL [Concomitant]

REACTIONS (15)
  - ARTHRALGIA [None]
  - BREAST SWELLING [None]
  - BREAST TENDERNESS [None]
  - EMOTIONAL DISORDER [None]
  - FEELING ABNORMAL [None]
  - HEADACHE [None]
  - HYPERSENSITIVITY [None]
  - JOINT STIFFNESS [None]
  - JOINT SWELLING [None]
  - MOOD SWINGS [None]
  - NAUSEA [None]
  - OEDEMA PERIPHERAL [None]
  - PRURITUS [None]
  - SINUS CONGESTION [None]
  - SWELLING FACE [None]
